FAERS Safety Report 7652609-X (Version None)
Quarter: 2011Q3

REPORT INFORMATION
  Report Type: 
  Country: None (occurrence: None)
  Receive Date: 20110803
  Receipt Date: 20110720
  Transmission Date: 20111222
  Serious: Yes (Hospitalization)
  Sender: FDA-Public Use
  Company Number: AR-UCBSA-037492

PATIENT
  Sex: Male
  Weight: 74 kg

DRUGS (1)
  1. CERTOLIZUMAB PEGOL [Suspect]
     Indication: SPINAL OSTEOARTHRITIS
     Route: 058
     Dates: end: 20110712

REACTIONS (1)
  - NASAL POLYPS [None]
